FAERS Safety Report 19133336 (Version 1)
Quarter: 2021Q2

REPORT INFORMATION
  Report Type: Spontaneous
  Country: US (occurrence: US)
  Receive Date: 20210413
  Receipt Date: 20210413
  Transmission Date: 20210717
  Serious: Yes (Death)
  Sender: FDA-Public Use
  Company Number: None

PATIENT
  Sex: Female

DRUGS (9)
  1. PIQRAY [Suspect]
     Active Substance: ALPELISIB
     Indication: BREAST CANCER FEMALE
     Route: 048
     Dates: start: 20200623
  2. ACETAMIN [Concomitant]
     Active Substance: ACETAMINOPHEN
  3. HYOSCYAMINE. [Concomitant]
     Active Substance: HYOSCYAMINE
  4. HYDROCHLOROT [Concomitant]
     Active Substance: HYDROCHLOROTHIAZIDE
  5. LORAZEPAM. [Concomitant]
     Active Substance: LORAZEPAM
  6. PROCHLORPER [Concomitant]
  7. MORPHINE SUL [Concomitant]
     Active Substance: MORPHINE SULFATE
  8. ONDANSETRON [Concomitant]
     Active Substance: ONDANSETRON
  9. LISINOPRIL. [Concomitant]
     Active Substance: LISINOPRIL

REACTIONS (1)
  - Death [None]
